FAERS Safety Report 8452042-7 (Version None)
Quarter: 2012Q2

REPORT INFORMATION
  Report Type: 
  Country: None (occurrence: None)
  Receive Date: 20120620
  Receipt Date: 20120418
  Transmission Date: 20120825
  Serious: No
  Sender: FDA-Public Use
  Company Number: US-VERTEX PHARMACEUTICALS INC.-AE-2012-004573

PATIENT
  Sex: Female
  Weight: 65.83 kg

DRUGS (5)
  1. RIBAVIRIN [Concomitant]
     Route: 048
     Dates: start: 20120409
  2. PEGASYS [Concomitant]
     Indication: HEPATITIS C
     Route: 058
     Dates: start: 20120116
  3. RIBAVIRIN [Concomitant]
     Indication: HEPATITIS C
     Route: 048
     Dates: start: 20120116, end: 20120212
  4. RIBAVIRIN [Concomitant]
     Route: 048
     Dates: start: 20120212, end: 20120224
  5. INCIVEK [Suspect]
     Indication: HEPATITIS C
     Route: 048
     Dates: start: 20120116, end: 20120409

REACTIONS (11)
  - OEDEMA MUCOSAL [None]
  - TONGUE COATED [None]
  - DIZZINESS [None]
  - SWELLING FACE [None]
  - HAEMATOCRIT DECREASED [None]
  - PRURITUS [None]
  - FATIGUE [None]
  - HAEMOGLOBIN DECREASED [None]
  - DYSPNOEA [None]
  - SWOLLEN TONGUE [None]
  - ASTHENIA [None]
